FAERS Safety Report 22122683 (Version 1)
Quarter: 2023Q1

REPORT INFORMATION
  Report Type: Spontaneous
  Country: US (occurrence: US)
  Receive Date: 20230321
  Receipt Date: 20230321
  Transmission Date: 20230418
  Serious: Yes (Hospitalization)
  Sender: FDA-Public Use
  Company Number: US-BRISTOL-MYERS SQUIBB COMPANY-2023-037025

PATIENT
  Age: 61 Year
  Sex: Female
  Weight: 108.86 kg

DRUGS (1)
  1. REVLIMID [Suspect]
     Active Substance: LENALIDOMIDE
     Indication: Plasma cell myeloma
     Dosage: DAILY DAYS 1-28 EVERY 28 DAYS
     Route: 048
     Dates: start: 20201029

REACTIONS (3)
  - Haemoglobin decreased [Unknown]
  - Blood thyroid stimulating hormone increased [Unknown]
  - Infection [Unknown]

NARRATIVE: CASE EVENT DATE: 20230220
